FAERS Safety Report 5113738-8 (Version None)
Quarter: 2006Q3

REPORT INFORMATION
  Report Type: 
  Country: None (occurrence: None)
  Receive Date: 20060921
  Receipt Date: 20060921
  Transmission Date: 20061208
  Serious: Yes (Hospitalization)
  Sender: FDA-Public Use
  Company Number: None

PATIENT
  Age: 19 Year
  Sex: Female
  Weight: 68.0396 kg

DRUGS (2)
  1. TYLENOL (CAPLET) [Suspect]
     Indication: SUICIDE ATTEMPT
     Dosage: UNKNOWN AMOUNT
  2. COMTREX [Suspect]
     Indication: SUICIDE ATTEMPT
     Dosage: 30 PILLS

REACTIONS (11)
  - ALCOHOL USE [None]
  - BLOOD PRESSURE DIASTOLIC DECREASED [None]
  - DRUG TOXICITY [None]
  - DRY SKIN [None]
  - HEART RATE INCREASED [None]
  - INCORRECT DOSE ADMINISTERED [None]
  - LETHARGY [None]
  - PALLOR [None]
  - SKIN WARM [None]
  - SUICIDAL IDEATION [None]
  - TEARFULNESS [None]
